FAERS Safety Report 9178946 (Version 1)
Quarter: 2013Q1

REPORT INFORMATION
  Report Type: Spontaneous
  Country: US (occurrence: US)
  Receive Date: 20130321
  Receipt Date: 20130321
  Transmission Date: 20140127
  Serious: No
  Sender: FDA-Public Use
  Company Number: US-PFIZER INC-2013091868

PATIENT
  Age: 54 Year
  Sex: Male
  Weight: 109 kg

DRUGS (4)
  1. GEODON [Suspect]
     Indication: BIPOLAR DISORDER
     Dosage: 160 MG (2 PILLS OF 80MG), 1X/DAY
     Route: 048
     Dates: end: 20130313
  2. WELLBUTRIN [Concomitant]
     Dosage: UNK
  3. EFFEXOR [Concomitant]
     Dosage: UNK
  4. RISPERDAL [Concomitant]
     Dosage: UNK

REACTIONS (1)
  - Depression [Not Recovered/Not Resolved]
